FAERS Safety Report 8096837 (Version 2)
Quarter: 2012Q4

REPORT INFORMATION
  Report Type: 
  Country: MX (occurrence: MX)
  Receive Date: 20110818
  Receipt Date: 20120910
  Transmission Date: 20130627
  Serious: Yes (Other)
  Sender: FDA-Public Use
  Company Number: PHHY2011MX70932

PATIENT
  Sex: Female

DRUGS (5)
  1. EXFORGE [Suspect]
     Indication: HYPERTENSION
     Dosage: 1 DF (vals 160 mg, amlo 10 mg), daily
     Dates: start: 201107
  2. DILATEN [Concomitant]
     Dosage: 1 DF, daily
  3. DIOVAN [Concomitant]
     Dosage: 1 DF, daily
  4. NOVOVERIL [Concomitant]
     Dosage: 1 DF, DAILY
  5. AMARYL [Concomitant]

REACTIONS (3)
  - Cardiac disorder [Unknown]
  - Arterial occlusive disease [Recovered/Resolved]
  - Blood cholesterol increased [Recovered/Resolved]
